FAERS Safety Report 9216747 (Version 1)
Quarter: 2013Q2

REPORT INFORMATION
  Report Type: Spontaneous
  Country: US (occurrence: US)
  Receive Date: 20130405
  Receipt Date: 20130405
  Transmission Date: 20140414
  Serious: No
  Sender: FDA-Public Use
  Company Number: US-BRACCO-009102

PATIENT
  Age: 63 Year
  Sex: Female

DRUGS (1)
  1. MDP [Suspect]
     Indication: VENTILATION/PERFUSION SCAN
     Route: 055
     Dates: start: 20130121, end: 20130121

REACTIONS (1)
  - Wrong drug administered [Recovered/Resolved]
